FAERS Safety Report 15377504 (Version 2)
Quarter: 2019Q1

REPORT INFORMATION
  Report Type: Spontaneous
  Country: US (occurrence: US)
  Receive Date: 20180913
  Receipt Date: 20190103
  Transmission Date: 20190417
  Serious: Yes (Hospitalization, Other)
  Sender: FDA-Public Use
  Company Number: US-ASTELLAS-2018US039791

PATIENT
  Sex: Male

DRUGS (1)
  1. XTANDI [Suspect]
     Active Substance: ENZALUTAMIDE
     Indication: PRODUCT USED FOR UNKNOWN INDICATION
     Route: 048
     Dates: start: 201808

REACTIONS (5)
  - Gait disturbance [Not Recovered/Not Resolved]
  - Product dose omission [Unknown]
  - Spinal cord neoplasm [Not Recovered/Not Resolved]
  - Pain [Recovered/Resolved]
  - Malignant neoplasm progression [Recovered/Resolved]
